FAERS Safety Report 7715535-3 (Version None)
Quarter: 2011Q3

REPORT INFORMATION
  Report Type: 
  Country: None (occurrence: None)
  Receive Date: 20110829
  Receipt Date: 20110818
  Transmission Date: 20111222
  Serious: Yes (Life-Threatening, Hospitalization)
  Sender: FDA-Public Use
  Company Number: FR-JNJFOC-20110811260

PATIENT
  Sex: Male

DRUGS (9)
  1. LYRICA [Concomitant]
     Route: 065
  2. ATACAND [Concomitant]
     Route: 065
  3. TRAMADOL HCL [Suspect]
     Indication: PAIN
     Dosage: 3 TIMES A DAY
     Route: 048
     Dates: start: 20090501, end: 20110512
  4. ACETAMINOPHEN [Concomitant]
     Route: 065
  5. BROMAZEPAM [Interacting]
     Indication: PRODUCT USED FOR UNKNOWN INDICATION
     Route: 065
  6. ZOPICLONE [Interacting]
     Indication: PRODUCT USED FOR UNKNOWN INDICATION
     Route: 065
  7. PLAVIX [Concomitant]
     Route: 065
  8. KEPPRA [Concomitant]
     Route: 065
  9. BACLOFEN [Interacting]
     Indication: PRODUCT USED FOR UNKNOWN INDICATION
     Route: 065

REACTIONS (4)
  - COMA [None]
  - OVERDOSE [None]
  - DRUG INTERACTION [None]
  - RESPIRATORY DISTRESS [None]
